FAERS Safety Report 8257053-2 (Version None)
Quarter: 2012Q2

REPORT INFORMATION
  Report Type: 
  Country: None (occurrence: None)
  Receive Date: 20120403
  Receipt Date: 20120328
  Transmission Date: 20120825
  Serious: No
  Sender: FDA-Public Use
  Company Number: JP-GLAXOSMITHKLINE-B0785564A

PATIENT
  Sex: Male

DRUGS (2)
  1. CHINESE MEDICINE [Suspect]
     Route: 048
     Dates: start: 20120224, end: 20120226
  2. RELENZA [Suspect]
     Indication: INFLUENZA
     Dosage: 20MG PER DAY
     Route: 055
     Dates: start: 20120224, end: 20120227

REACTIONS (7)
  - MEMORY IMPAIRMENT [None]
  - LOSS OF CONSCIOUSNESS [None]
  - DELIRIUM [None]
  - SCREAMING [None]
  - CONVULSION [None]
  - SLEEP TERROR [None]
  - ABNORMAL BEHAVIOUR [None]
